FAERS Safety Report 24711964 (Version 1)
Quarter: 2024Q4

REPORT INFORMATION
  Report Type: Report from Study
  Country: CA (occurrence: CA)
  Receive Date: 20241209
  Receipt Date: 20241209
  Transmission Date: 20250114
  Serious: Yes (Other)
  Sender: JAZZ
  Company Number: CA-JAZZ PHARMACEUTICALS-2024-CA-018465

PATIENT
  Sex: Male
  Weight: 43.1 kg

DRUGS (9)
  1. EPIDIOLEX [Suspect]
     Active Substance: CANNABIDIOL
     Indication: Seizure
     Dosage: 2.64 MILLILITER, BID (264 MILLIGRAM,BID)
     Route: 048
     Dates: start: 20240718
  2. EPIDIOLEX [Suspect]
     Active Substance: CANNABIDIOL
     Dosage: 2.7 MILLILITER, BID
  3. CLOBAZAM [Concomitant]
     Active Substance: CLOBAZAM
     Dosage: 7.5 MILLIGRAM, BID
  4. CLONAZEPAM [Concomitant]
     Active Substance: CLONAZEPAM
     Dosage: 0.25 MILLIGRAM, QD
  5. FENFLURAMINE [Concomitant]
     Active Substance: FENFLURAMINE
     Dosage: 3.96 MILLIGRAM, BID
  6. FERROUS SULFATE [Concomitant]
     Active Substance: FERROUS SULFATE
     Dosage: 75 MILLIGRAM, QD
  7. LANSOPRAZOLE [Concomitant]
     Active Substance: LANSOPRAZOLE
     Dosage: 15 MILLIGRAM, QD
  8. LORATADINE [Concomitant]
     Active Substance: LORATADINE
     Dosage: 5 MILLIGRAM, QD
  9. STIRIPENTOL [Concomitant]
     Active Substance: STIRIPENTOL
     Dosage: 250 MILLIGRAM, BID

REACTIONS (1)
  - Seizure [Unknown]
